FAERS Safety Report 10383228 (Version 2)
Quarter: 2015Q2

REPORT INFORMATION
  Report Type: Report from Study
  Country: ES (occurrence: ES)
  Receive Date: 20140814
  Receipt Date: 20150423
  Transmission Date: 20150821
  Serious: Yes (Hospitalization)
  Sender: FDA-Public Use
  Company Number: ES-AMGEN-ESPCT2014060915

PATIENT
  Age: 47 Year
  Sex: Male

DRUGS (8)
  1. FLUCONAZOL [Concomitant]
     Active Substance: FLUCONAZOLE
     Dosage: 200 MG, QD
     Dates: start: 20140818, end: 20140822
  2. MICOSTATIN [Concomitant]
     Dosage: UNK
     Dates: start: 20140808, end: 20140818
  3. PACLITAXEL. [Concomitant]
     Active Substance: PACLITAXEL
     Indication: HEAD AND NECK CANCER
     Dosage: UNK
     Dates: start: 20140509
  4. PANITUMUMAB [Suspect]
     Active Substance: PANITUMUMAB
     Indication: HEAD AND NECK CANCER
     Dosage: 156 MG, QWK
     Route: 042
     Dates: start: 20140509
  5. DUROGESIC [Concomitant]
     Active Substance: FENTANYL
     Dosage: 25 UNK, UNK
     Dates: start: 20140808
  6. ENANTYUM [Concomitant]
     Active Substance: DEXKETOPROFEN TROMETAMOL
     Dosage: UNK
     Route: 042
     Dates: start: 20140808
  7. TIENAM [Concomitant]
     Active Substance: CILASTATIN SODIUM\IMIPENEM
     Dosage: 2 G,PER DIALYSIS
     Route: 042
     Dates: start: 20140811, end: 20140821
  8. VANCOMICINA [Concomitant]
     Active Substance: VANCOMYCIN
     Dosage: 2 G, PER DIALYSIS
     Dates: start: 20140811, end: 20140819

REACTIONS (1)
  - Mucosal inflammation [Recovering/Resolving]

NARRATIVE: CASE EVENT DATE: 20140808
